FAERS Safety Report 6437504-6 (Version None)
Quarter: 2009Q4

REPORT INFORMATION
  Report Type: 
  Country: None (occurrence: None)
  Receive Date: 20091112
  Receipt Date: 20091019
  Transmission Date: 20100525
  Serious: Yes (Other)
  Sender: FDA-Public Use
  Company Number: DE-BRACCO-000461

PATIENT

DRUGS (4)
  1. GADOPENTETATE DIMEGLUMINE [Suspect]
     Indication: OSTEOCHONDROSIS
     Dosage: FIVE TIMES
     Route: 065
     Dates: start: 20040801, end: 20050101
  2. GADOPENTETATE DIMEGLUMINE [Suspect]
     Indication: NUCLEAR MAGNETIC RESONANCE IMAGING
     Dosage: FIVE TIMES
     Route: 065
     Dates: start: 20040801, end: 20050101
  3. GADOBENIC ACID [Suspect]
     Indication: NUCLEAR MAGNETIC RESONANCE IMAGING
     Dosage: ONCE
     Route: 065
  4. GADOBENIC ACID [Suspect]
     Indication: OSTEOCHONDROSIS
     Dosage: ONCE
     Route: 065

REACTIONS (1)
  - NEPHROGENIC SYSTEMIC FIBROSIS [None]
